FAERS Safety Report 6435013-1 (Version None)
Quarter: 2009Q4

REPORT INFORMATION
  Report Type: 
  Country: None (occurrence: None)
  Receive Date: 20091110
  Receipt Date: 20091029
  Transmission Date: 20100525
  Serious: Yes (Hospitalization)
  Sender: FDA-Public Use
  Company Number: PHHY2009FR44831

PATIENT
  Sex: Male

DRUGS (8)
  1. RASILEZ [Suspect]
     Indication: HYPERTENSION
     Dosage: 150 MG DAILY
     Route: 048
     Dates: start: 20091007, end: 20091012
  2. OFLOCET [Suspect]
     Dosage: 200 MG PER DAY
     Route: 048
     Dates: start: 20091010, end: 20091012
  3. ROCEPHIN [Concomitant]
     Indication: LUNG DISORDER
     Dosage: 1 G, BID
     Route: 042
     Dates: start: 20091010, end: 20091020
  4. CORDARONE [Concomitant]
     Indication: ATRIAL FIBRILLATION
     Dosage: 200 MG PER DAY
     Dates: end: 20091020
  5. DEPAKINE CHRONO [Concomitant]
     Indication: EPILEPSY
     Dosage: 500 MG, BID
     Dates: end: 20091020
  6. MINISINTROM [Concomitant]
     Indication: ATRIAL FIBRILLATION
     Dosage: 1 MG EVERY 2 DAYS OVER 3
     Route: 048
     Dates: end: 20091020
  7. ZYLORIC [Concomitant]
     Indication: GOUT
     Dosage: 100 MG/DAY
     Route: 048
     Dates: end: 20091020
  8. ESOMEPRAZOLE MAGNESIUM [Concomitant]
     Indication: PROPHYLAXIS
     Dosage: 40 MG/DAY
     Dates: end: 20091020

REACTIONS (1)
  - RENAL FAILURE ACUTE [None]
